FAERS Safety Report 4661522-1 (Version None)
Quarter: 2005Q2

REPORT INFORMATION
  Report Type: 
  Country: None (occurrence: None)
  Receive Date: 20050502
  Receipt Date: 20050127
  Transmission Date: 20051028
  Serious: No
  Sender: FDA-Public Use
  Company Number: 200510102US

PATIENT
  Age: 49 Year
  Sex: Male
  Weight: 102.3 kg

DRUGS (3)
  1. KETEK [Suspect]
     Indication: BRONCHITIS
     Dosage: 800 MG QD
     Dates: start: 20041221, end: 20041224
  2. TRAZODONE HYDROCHLORIDE (DESYREL) [Concomitant]
  3. PSEUDOEPHEDRINE HYDROCHLORIDE, IBUPROFEN (ADVIL COLD + SINUS) [Concomitant]

REACTIONS (1)
  - ANXIETY [None]
